FAERS Safety Report 9330927 (Version 1)
Quarter: 2013Q2

REPORT INFORMATION
  Report Type: Spontaneous
  Country: JP (occurrence: JP)
  Receive Date: 20130605
  Receipt Date: 20130605
  Transmission Date: 20140414
  Serious: Yes (Other)
  Sender: FDA-Public Use
  Company Number: JP-PFIZER INC-2013168688

PATIENT
  Sex: Female

DRUGS (1)
  1. SOLANAX [Suspect]
     Indication: EXTRASYSTOLES
     Dosage: UNK, AS NEEDED
     Route: 048

REACTIONS (2)
  - Intraocular pressure increased [Unknown]
  - Off label use [Unknown]
